FAERS Safety Report 13376952 (Version 1)
Quarter: 2017Q1

REPORT INFORMATION
  Report Type: Spontaneous
  Country: US (occurrence: US)
  Receive Date: 20170328
  Receipt Date: 20170328
  Transmission Date: 20170429
  Serious: No
  Sender: FDA-Public Use
  Company Number: US-PERRIGO-16US015503

PATIENT
  Age: 71 Year
  Sex: Female
  Weight: 61.68 kg

DRUGS (2)
  1. LORATADINE AND PSEUDOEPHEDRINE SULFATE [Suspect]
     Active Substance: LORATADINE\PSEUDOEPHEDRINE SULFATE
     Indication: SNEEZING
  2. LORATADINE AND PSEUDOEPHEDRINE SULFATE [Suspect]
     Active Substance: LORATADINE\PSEUDOEPHEDRINE SULFATE
     Indication: RHINORRHOEA
     Dosage: ONE TABLET, SINGLE
     Route: 048
     Dates: start: 20160418, end: 20160418

REACTIONS (2)
  - No adverse event [Unknown]
  - Off label use [Recovered/Resolved]

NARRATIVE: CASE EVENT DATE: 20160418
